FAERS Safety Report 4884359-7 (Version None)
Quarter: 2006Q1

REPORT INFORMATION
  Report Type: 
  Country: None (occurrence: None)
  Receive Date: 20060117
  Receipt Date: 20060117
  Transmission Date: 20060701
  Serious: Yes (Hospitalization)
  Sender: FDA-Public Use
  Company Number: None

PATIENT
  Age: 74 Year
  Sex: Female

DRUGS (9)
  1. TEQUIN [Suspect]
     Indication: INFECTION
     Dosage: 400 MG QD PO X 14 DAYS
     Route: 048
     Dates: start: 20040312, end: 20040314
  2. ZOCOR [Concomitant]
  3. METFORMIN HCL [Concomitant]
  4. GLIPIZIDE [Concomitant]
  5. ALBUTEROL SULFATE AUTOHALER [Concomitant]
  6. BLOOD GLUCOSE [Concomitant]
  7. LANCETS [Concomitant]
  8. CELECOXIB [Concomitant]
  9. KEFLEX [Concomitant]

REACTIONS (1)
  - HYPOGLYCAEMIA [None]
